FAERS Safety Report 5854009-1 (Version None)
Quarter: 2008Q3

REPORT INFORMATION
  Report Type: 
  Country: None (occurrence: None)
  Receive Date: 20080822
  Receipt Date: 20080811
  Transmission Date: 20090109
  Serious: Yes (Hospitalization)
  Sender: FDA-Public Use
  Company Number: FR-ROCHE-580829

PATIENT
  Sex: Female

DRUGS (25)
  1. FUZEON [Suspect]
     Route: 065
     Dates: start: 20071227, end: 20080404
  2. FUZEON [Suspect]
     Route: 065
     Dates: start: 20080418
  3. TMC 125 [Suspect]
     Route: 048
     Dates: start: 20071227, end: 20080404
  4. TMC 125 [Suspect]
     Route: 048
     Dates: start: 20080418
  5. PREZISTA [Suspect]
     Route: 048
     Dates: start: 20071227, end: 20080404
  6. PREZISTA [Suspect]
     Route: 048
     Dates: start: 20080418
  7. NORVIR [Suspect]
     Route: 048
     Dates: start: 20071227, end: 20080404
  8. NORVIR [Suspect]
     Route: 048
     Dates: start: 20080418
  9. TAHOR [Suspect]
     Route: 048
     Dates: start: 20071227, end: 20080404
  10. ISENTRESS [Suspect]
     Route: 065
     Dates: start: 20071227, end: 20080404
  11. ISENTRESS [Suspect]
     Route: 065
     Dates: start: 20080418
  12. PLAVIX [Concomitant]
  13. ASPEGIC 325 [Concomitant]
  14. ASPEGIC 325 [Concomitant]
     Dates: start: 20080428
  15. ZYPREXA [Concomitant]
  16. ZYPREXA [Concomitant]
     Dates: start: 20080425
  17. DARUNAVIR [Concomitant]
  18. TAZOCILLINE [Concomitant]
     Dates: start: 20080404, end: 20080407
  19. CIPROFLOXACIN HYDROCHLORIDE [Concomitant]
     Dates: start: 20080404, end: 20080407
  20. CLAFORAN [Concomitant]
     Dates: end: 20080409
  21. CEFTRIAXONE [Concomitant]
     Dates: end: 20080418
  22. ZELITREX [Concomitant]
  23. ZELITREX [Concomitant]
     Dates: start: 20080409
  24. WELLVONE [Concomitant]
     Dates: end: 20080413
  25. WELLVONE [Concomitant]
     Dates: start: 20080423

REACTIONS (2)
  - RENAL FAILURE [None]
  - RHABDOMYOLYSIS [None]
